FAERS Safety Report 8925120 (Version 1)
Quarter: 2012Q4

REPORT INFORMATION
  Report Type: Spontaneous
  Country: DE (occurrence: None)
  Receive Date: 20121116
  Receipt Date: 20121116
  Transmission Date: 20130627
  Serious: Yes (Death)
  Sender: FDA-Public Use
  Company Number: 2012-591

PATIENT
  Sex: Male

DRUGS (2)
  1. PRIALT [Suspect]
     Route: 037
     Dates: start: 2010, end: 2012
  2. MORPHINE SULFATE [Suspect]
     Route: 037
     Dates: start: 2010, end: 2012

REACTIONS (1)
  - Myocardial infarction [None]
